FAERS Safety Report 7539872-0 (Version None)
Quarter: 2011Q2

REPORT INFORMATION
  Report Type: 
  Country: None (occurrence: None)
  Receive Date: 20110610
  Receipt Date: 20110607
  Transmission Date: 20111010
  Serious: Yes (Life-Threatening, Hospitalization, Other)
  Sender: FDA-Public Use
  Company Number: US-ELI_LILLY_AND_COMPANY-US201012002304

PATIENT
  Sex: Male
  Weight: 73.923 kg

DRUGS (10)
  1. ASPIRIN [Concomitant]
     Dosage: 325 MG, DAILY (1/D)
     Route: 048
     Dates: start: 20101207, end: 20101211
  2. SIMVASTATIN [Concomitant]
     Dosage: 20 MG, DAILY (1/D)
     Route: 048
  3. ALBUTEROL SULFATE AUTOHALER [Concomitant]
     Indication: CHRONIC OBSTRUCTIVE PULMONARY DISEASE
     Dosage: 2 D/F, AS NEEDED
     Route: 055
  4. INTEGRIN [Concomitant]
     Indication: MYOCARDIAL INFARCTION
     Dosage: 27.2 MG, OTHER
     Route: 042
     Dates: start: 20101207, end: 20101207
  5. PRASUGREL HYDROCHLORIDE [Suspect]
     Indication: ACUTE CORONARY SYNDROME
     Dosage: 10 MG, DAILY (1/D)
     Dates: start: 20100806
  6. CLOPIDOGREL [Concomitant]
     Indication: ANTIPLATELET THERAPY
     Dosage: 300 MG, OTHER
  7. ASPIRIN [Concomitant]
     Dosage: 81 MG, QD
     Dates: start: 20100806
  8. INTEGRIN [Concomitant]
     Dosage: 54 MG, OTHER
     Route: 042
     Dates: start: 20101207, end: 20101207
  9. ASPIRIN [Concomitant]
     Indication: THROMBOSIS PROPHYLAXIS
     Dosage: 81 MG, DAILY (1/D)
     Route: 048
     Dates: end: 20101207
  10. SIMVASTATIN [Concomitant]
     Indication: HYPERCHOLESTEROLAEMIA
     Dosage: 40 MG, QD
     Route: 048
     Dates: start: 20101207, end: 20101210

REACTIONS (4)
  - ATRIOVENTRICULAR BLOCK COMPLETE [None]
  - THROMBOSIS IN DEVICE [None]
  - VENTRICULAR TACHYCARDIA [None]
  - MYOCARDIAL INFARCTION [None]
